FAERS Safety Report 4953031-7 (Version None)
Quarter: 2006Q1

REPORT INFORMATION
  Report Type: 
  Country: None (occurrence: None)
  Receive Date: 20060324
  Receipt Date: 20060317
  Transmission Date: 20060701
  Serious: Yes (Hospitalization)
  Sender: FDA-Public Use
  Company Number: PT-GLAXOSMITHKLINE-B0416940A

PATIENT
  Age: 49 Year
  Sex: Female
  Weight: 70 kg

DRUGS (4)
  1. CLAMOXYL [Suspect]
     Indication: RESPIRATORY TRACT INFECTION
     Dosage: 3G PER DAY
     Route: 048
     Dates: start: 20060209, end: 20060214
  2. PERINDOPRIL [Concomitant]
     Dosage: 4MG PER DAY
     Route: 048
  3. PENTOSAN POLYSULFATE SODIUM [Concomitant]
     Indication: DRUG USE FOR UNKNOWN INDICATION
     Route: 048
  4. CODEINE PHOSPHATE AND ACETAMINOPHEN [Concomitant]
     Indication: DRUG USE FOR UNKNOWN INDICATION
     Route: 065

REACTIONS (2)
  - PERIORBITAL OEDEMA [None]
  - RASH MACULO-PAPULAR [None]
